FAERS Safety Report 17186287 (Version 4)
Quarter: 2020Q2

REPORT INFORMATION
  Report Type: Report from Study
  Country: DE (occurrence: DE)
  Receive Date: 20191220
  Receipt Date: 20200605
  Transmission Date: 20200713
  Serious: Yes (Hospitalization, Other)
  Sender: FDA-Public Use
  Company Number: NVSC2019DE070527

PATIENT
  Sex: Male

DRUGS (5)
  1. COSENTYX [Suspect]
     Active Substance: SECUKINUMAB
     Indication: PSORIASIS
     Dosage: 150 MG
     Route: 058
     Dates: start: 20150914
  2. ENOXAPARIN [Concomitant]
     Active Substance: ENOXAPARIN
     Indication: ANTICOAGULANT THERAPY
     Dosage: 8000 IU . (80 MG)/0.8 ML SOLUTION FOR INJECTION IN PREFILLED SYRINGE)
     Route: 065
  3. PHENPROGAMMA [Concomitant]
     Active Substance: PHENPROCOUMON
     Indication: PRODUCT USED FOR UNKNOWN INDICATION
     Dosage: 3 MG
     Route: 065
  4. MARCUMAR [Concomitant]
     Active Substance: PHENPROCOUMON
     Indication: PRODUCT USED FOR UNKNOWN INDICATION
     Dosage: UNK
     Route: 065
  5. LOW MOLECULAR WEIGHT HEPARIN [Concomitant]
     Active Substance: UNSPECIFIED INGREDIENT
     Indication: PRODUCT USED FOR UNKNOWN INDICATION
     Dosage: UNK
     Route: 065

REACTIONS (17)
  - Abdominal pain lower [Recovered/Resolved]
  - Abdominal pain [Recovered/Resolved]
  - Intervertebral discitis [Recovered/Resolved]
  - Abdominal discomfort [Recovered/Resolved]
  - Abdominal tenderness [Recovered/Resolved]
  - Left ventricular dysfunction [Unknown]
  - Nausea [Recovered/Resolved]
  - Type 2 diabetes mellitus [Unknown]
  - Appendicitis [Recovered/Resolved]
  - C-reactive protein increased [Unknown]
  - Bowel movement irregularity [Recovered/Resolved]
  - Abdominal distension [Recovered/Resolved]
  - Intracranial aneurysm [Unknown]
  - Intervertebral disc protrusion [Unknown]
  - Chromaturia [Unknown]
  - Peripheral arterial occlusive disease [Unknown]
  - Gamma-glutamyltransferase increased [Unknown]

NARRATIVE: CASE EVENT DATE: 201909
